FAERS Safety Report 5598774-X (Version None)
Quarter: 2008Q1

REPORT INFORMATION
  Report Type: 
  Country: None (occurrence: None)
  Receive Date: 20080122
  Receipt Date: 20080115
  Transmission Date: 20080703
  Serious: Yes (Other)
  Sender: FDA-Public Use
  Company Number: GB-RANBAXY-2008RR-12571

PATIENT

DRUGS (3)
  1. TERBINAFINE HCL [Suspect]
     Indication: NAIL INFECTION
     Dosage: 250 MG, QD
     Route: 065
     Dates: start: 20001214, end: 20030101
  2. TEGRETOL [Suspect]
     Dosage: 400 MG, BID
  3. LAMICTAL [Concomitant]
     Dosage: 100 MG, QD

REACTIONS (2)
  - DRUG INTERACTION [None]
  - PETIT MAL EPILEPSY [None]
